FAERS Safety Report 8234963-3 (Version None)
Quarter: 2012Q1

REPORT INFORMATION
  Report Type: 
  Country: None (occurrence: None)
  Receive Date: 20120326
  Receipt Date: 20120314
  Transmission Date: 20120608
  Serious: Yes (Death)
  Sender: FDA-Public Use
  Company Number: US-ACTELION-A-US2012-63063

PATIENT

DRUGS (5)
  1. ASPIRIN [Concomitant]
  2. COUMADIN [Concomitant]
  3. LASIX [Suspect]
  4. EPOPROSTENOL SODIUM [Suspect]
     Indication: PULMONARY ARTERIAL HYPERTENSION
     Dosage: 13 NG/KG, PER MIN
     Route: 042
     Dates: start: 20120118
  5. SILDENAFIL [Concomitant]

REACTIONS (1)
  - DEATH [None]
